FAERS Safety Report 11939985 (Version 1)
Quarter: 2016Q1

REPORT INFORMATION
  Report Type: Report from Study
  Country: IT (occurrence: IT)
  Receive Date: 20160122
  Receipt Date: 20160122
  Transmission Date: 20160526
  Serious: Yes (Other)
  Sender: FDA-Public Use
  Company Number: IT-WATSON-2015-26676

PATIENT
  Sex: Female

DRUGS (2)
  1. XANAX [Suspect]
     Active Substance: ALPRAZOLAM
     Indication: ANXIETY
     Dosage: 30 GTT DROP(S), TOTAL
     Route: 048
     Dates: start: 20150525, end: 20150525
  2. LORAZEPAM. [Suspect]
     Active Substance: LORAZEPAM
     Indication: ANXIETY
     Dosage: 20 GTT DROP(S), TOTAL
     Route: 048
     Dates: start: 20150525, end: 20150525

REACTIONS (2)
  - Vertigo [Recovering/Resolving]
  - Psychomotor retardation [Recovering/Resolving]
